FAERS Safety Report 10758048 (Version 1)
Quarter: 2015Q1

REPORT INFORMATION
  Report Type: Spontaneous
  Country: US (occurrence: None)
  Receive Date: 20150202
  Receipt Date: 20150202
  Transmission Date: 20150721
  Serious: No
  Sender: FDA-Public Use
  Company Number: None

PATIENT
  Age: 71 Year
  Sex: Male

DRUGS (1)
  1. RAMIPRIL. [Suspect]
     Active Substance: RAMIPRIL
     Indication: HYPERTENSION
     Dosage: 5 QD ORAL
     Route: 048
     Dates: start: 20150101, end: 20150126

REACTIONS (3)
  - Product physical issue [None]
  - Blood pressure increased [None]
  - Choking [None]

NARRATIVE: CASE EVENT DATE: 20150101
